FAERS Safety Report 13705686 (Version 1)
Quarter: 2017Q2

REPORT INFORMATION
  Report Type: Report from Study
  Country: None (occurrence: US)
  Receive Date: 20170630
  Receipt Date: 20170630
  Transmission Date: 20170830
  Serious: No
  Sender: FDA-Public Use
  Company Number: US-IPSEN BIOPHARMACEUTICALS, INC.-2014-1390

PATIENT
  Age: 61 Year
  Sex: Male
  Weight: 102 kg

DRUGS (1)
  1. SOMATULINE DEPOT [Suspect]
     Active Substance: LANREOTIDE ACETATE
     Indication: ACROMEGALY
     Dosage: 90MG, EVERY 28 DAYS
     Route: 058
     Dates: start: 20140311

REACTIONS (3)
  - Injection site pain [Not Recovered/Not Resolved]
  - Diarrhoea [None]
  - Abdominal pain upper [Unknown]

NARRATIVE: CASE EVENT DATE: 20140312
